FAERS Safety Report 22868713 (Version 2)
Quarter: 2023Q4

REPORT INFORMATION
  Report Type: Spontaneous
  Country: US (occurrence: US)
  Receive Date: 20230825
  Receipt Date: 20231113
  Transmission Date: 20240109
  Serious: No
  Sender: FDA-Public Use
  Company Number: US-LUNDBECK-DKLU3066501

PATIENT
  Age: 38 Year
  Sex: Female

DRUGS (1)
  1. VYEPTI [Suspect]
     Active Substance: EPTINEZUMAB-JJMR
     Indication: Migraine prophylaxis
     Route: 041
     Dates: start: 20230314

REACTIONS (3)
  - Throat clearing [Not Recovered/Not Resolved]
  - Increased viscosity of upper respiratory secretion [Not Recovered/Not Resolved]
  - Throat irritation [Not Recovered/Not Resolved]

NARRATIVE: CASE EVENT DATE: 20230314
